FAERS Safety Report 10728830 (Version 3)
Quarter: 2015Q3

REPORT INFORMATION
  Report Type: Spontaneous
  Country: IE (occurrence: IE)
  Receive Date: 20150122
  Receipt Date: 20150917
  Transmission Date: 20151125
  Serious: Yes (Death)
  Sender: FDA-Public Use
  Company Number: PHFR2015IE000900

PATIENT
  Age: 63 Year
  Sex: Male

DRUGS (1)
  1. CLOZARIL [Suspect]
     Active Substance: CLOZAPINE
     Indication: SCHIZOPHRENIA
     Dosage: UNK
     Route: 048
     Dates: start: 20050829

REACTIONS (4)
  - Aortic aneurysm rupture [Fatal]
  - Low density lipoprotein increased [Unknown]
  - Abdominal pain [Fatal]
  - Blood cholesterol increased [Unknown]

NARRATIVE: CASE EVENT DATE: 20141228
